FAERS Safety Report 20330311 (Version 3)
Quarter: 2022Q1

REPORT INFORMATION
  Report Type: Spontaneous
  Country: US (occurrence: None)
  Receive Date: 20220113
  Receipt Date: 20220201
  Transmission Date: 20220423
  Serious: Yes (Other)
  Sender: FDA-Public Use
  Company Number: 2022A009120

PATIENT
  Age: 28217 Day
  Sex: Male
  Weight: 64.9 kg

DRUGS (3)
  1. TUDORZA PRESSAIR [Suspect]
     Active Substance: ACLIDINIUM BROMIDE
     Indication: Asbestosis
     Route: 055
  2. TUDORZA PRESSAIR [Suspect]
     Active Substance: ACLIDINIUM BROMIDE
     Indication: Chronic obstructive pulmonary disease
     Route: 055
  3. NITROGLYCERIDES [Concomitant]
     Route: 060

REACTIONS (5)
  - Dyspnoea [Recovered/Resolved]
  - Amnesia [Unknown]
  - Drug dose omission by device [Unknown]
  - Chest pain [Unknown]
  - Device malfunction [Unknown]

NARRATIVE: CASE EVENT DATE: 20220103
